FAERS Safety Report 17041616 (Version 4)
Quarter: 2019Q4

REPORT INFORMATION
  Report Type: Spontaneous
  Country: SI (occurrence: SI)
  Receive Date: 20191118
  Receipt Date: 20191209
  Transmission Date: 20200122
  Serious: Yes (Death, Life-Threatening)
  Sender: FDA-Public Use
  Company Number: SI-ROCHE-2473356

PATIENT
  Age: 79 Year
  Sex: Male

DRUGS (2)
  1. AMOXICLAV [Concomitant]
     Active Substance: AMOXICILLIN\CLAVULANATE POTASSIUM
  2. ACTILYSE [Suspect]
     Active Substance: ALTEPLASE
     Indication: OBSTRUCTIVE SHOCK
     Route: 042

REACTIONS (7)
  - Pneumonia aspiration [Not Recovered/Not Resolved]
  - Respiratory failure [Fatal]
  - Shock [Fatal]
  - Cardiac tamponade [Not Recovered/Not Resolved]
  - Circulatory collapse [Fatal]
  - Sepsis [Not Recovered/Not Resolved]
  - Cardiac failure [Fatal]
